FAERS Safety Report 16826604 (Version 1)
Quarter: 2019Q3

REPORT INFORMATION
  Report Type: Report from Study
  Country: US (occurrence: US)
  Receive Date: 20190919
  Receipt Date: 20190919
  Transmission Date: 20191005
  Serious: Yes (Hospitalization)
  Sender: FDA-Public Use
  Company Number: PHEH2019US038343

PATIENT
  Sex: Male
  Weight: 81.63 kg

DRUGS (1)
  1. TREPROSTINIL. [Suspect]
     Active Substance: TREPROSTINIL
     Indication: PULMONARY ARTERIAL HYPERTENSION
     Dosage: 78 NG/KG/MIN, CONTINUOUS
     Route: 042
     Dates: start: 20190509

REACTIONS (2)
  - Condition aggravated [Unknown]
  - Pulmonary arterial hypertension [Unknown]
